FAERS Safety Report 23039832 (Version 1)
Quarter: 2023Q4

REPORT INFORMATION
  Report Type: Report from Study
  Country: US (occurrence: US)
  Receive Date: 20231006
  Receipt Date: 20231006
  Transmission Date: 20240109
  Serious: Yes (Death)
  Sender: FDA-Public Use
  Company Number: US-BAYER-2023A138721

PATIENT
  Age: 60 Year
  Sex: Female
  Weight: 108.39 kg

DRUGS (3)
  1. ADEMPAS [Suspect]
     Active Substance: RIOCIGUAT
     Indication: Pulmonary arterial hypertension
     Dosage: 1 MG, TID
     Route: 048
     Dates: start: 20230907
  2. TADALAFIL [Suspect]
     Active Substance: TADALAFIL
  3. TYVASO [Concomitant]
     Active Substance: TREPROSTINIL

REACTIONS (2)
  - Death [Fatal]
  - Contraindicated product administered [None]

NARRATIVE: CASE EVENT DATE: 20230901
